FAERS Safety Report 10217175 (Version 1)
Quarter: 2014Q2

REPORT INFORMATION
  Report Type: Spontaneous
  Country: TR (occurrence: TR)
  Receive Date: 20140604
  Receipt Date: 20140604
  Transmission Date: 20141212
  Serious: Yes (Other)
  Sender: FDA-Public Use
  Company Number: PHHY2014TR066634

PATIENT
  Age: 22 Month
  Sex: Male

DRUGS (3)
  1. CLARITHROMYCIN [Suspect]
     Indication: OTITIS MEDIA ACUTE
  2. AMPICILLIN [Concomitant]
     Indication: HYDRONEPHROSIS
     Dosage: UNK UKN, UNK
  3. AMPICILLIN [Concomitant]
     Indication: URINARY TRACT INFECTION

REACTIONS (5)
  - Drug eruption [Recovered/Resolved]
  - Rash [Recovered/Resolved]
  - Pruritus [Recovered/Resolved]
  - Skin lesion [Recovered/Resolved]
  - Erythema [Recovered/Resolved]
